FAERS Safety Report 5411530-8 (Version None)
Quarter: 2007Q3

REPORT INFORMATION
  Report Type: 
  Country: None (occurrence: None)
  Receive Date: 20070810
  Receipt Date: 20070806
  Transmission Date: 20080115
  Serious: Yes (Hospitalization)
  Sender: FDA-Public Use
  Company Number: IN-ROXANE LABORATORIES, INC-2007-BP-18627RO

PATIENT
  Age: 16 Year
  Sex: Female

DRUGS (3)
  1. LITHIUM CARBONATE [Suspect]
     Indication: MANIA
  2. OLANZAPINE [Suspect]
     Indication: MAJOR DEPRESSION
  3. ESCITALOPRAM [Suspect]
     Indication: MAJOR DEPRESSION

REACTIONS (6)
  - BLOOD UREA INCREASED [None]
  - CATATONIA [None]
  - DEHYDRATION [None]
  - MANIA [None]
  - THERAPEUTIC AGENT TOXICITY [None]
  - WHITE BLOOD CELL COUNT INCREASED [None]
